FAERS Safety Report 8556840-0 (Version None)
Quarter: 2012Q3

REPORT INFORMATION
  Report Type: 
  Country: None (occurrence: None)
  Receive Date: 20120719
  Receipt Date: 20120706
  Transmission Date: 20120928
  Serious: Yes (Hospitalization, Disabling, Other)
  Sender: FDA-Public Use
  Company Number: 2012AP002056

PATIENT
  Age: 76 Year
  Sex: Male

DRUGS (11)
  1. AMLODIPINE [Concomitant]
  2. SODIUM BICARBONATE IN PLASTIC CONTAINER [Concomitant]
  3. SIMVASTATIN [Concomitant]
  4. CIRCADIN (MELATONIN) [Concomitant]
  5. TRAMADOL HCL [Concomitant]
  6. ATENOLOL [Concomitant]
  7. CO-DYDRAMOL (PARAMOL-118) [Concomitant]
  8. CLOPIDOGREL [Concomitant]
  9. DOXAZOSIN MESYLATE [Concomitant]
  10. RAMIPRIL [Suspect]
     Indication: HYPERTENSION
     Dosage: 10 MG, PO
     Route: 048
     Dates: start: 20110901, end: 20120325
  11. ASACOL [Concomitant]

REACTIONS (6)
  - MALAISE [None]
  - DYSSTASIA [None]
  - ABASIA [None]
  - SYNCOPE [None]
  - ORTHOSTATIC HYPOTENSION [None]
  - ASTHENIA [None]
